FAERS Safety Report 4957432-2 (Version None)
Quarter: 2006Q1

REPORT INFORMATION
  Report Type: 
  Country: None (occurrence: None)
  Receive Date: 20060327
  Receipt Date: 20060316
  Transmission Date: 20060701
  Serious: Yes (Other)
  Sender: FDA-Public Use
  Company Number: 2006-03-0920

PATIENT
  Age: 29 Year
  Sex: Female

DRUGS (4)
  1. BETAMETHASONE OINTMENT [Suspect]
     Indication: HERPES GESTATIONIS
     Dosage: TOP-DERM
     Route: 061
  2. PREDNISOLONE [Suspect]
     Indication: IMMUNOSUPPRESSION
     Dosage: 60 MG-25 MG*
  3. POTASSIUM PERMANGANATE TOPICALS [Concomitant]
  4. ERYTHROMYCIN [Concomitant]

REACTIONS (3)
  - DRUG EXPOSURE DURING PREGNANCY [None]
  - HYPERGLYCAEMIA [None]
  - PREMATURE RUPTURE OF MEMBRANES [None]
